FAERS Safety Report 10052731 (Version 1)
Quarter: 2014Q2

REPORT INFORMATION
  Report Type: Spontaneous
  Country: BR (occurrence: BR)
  Receive Date: 20140402
  Receipt Date: 20140402
  Transmission Date: 20141212
  Serious: Yes (Other)
  Sender: FDA-Public Use
  Company Number: BR-PFIZER INC-2014088777

PATIENT
  Age: 92 Year
  Sex: Female
  Weight: 45 kg

DRUGS (3)
  1. XALATAN [Suspect]
     Indication: INTRAOCULAR PRESSURE TEST ABNORMAL
     Dosage: 1 DROP IN EACH EYE (3 UG), 1X/DAY
     Route: 047
     Dates: start: 201311
  2. XALATAN [Suspect]
     Dosage: ONE DROP IN LEFT EYE
     Route: 047
     Dates: start: 2014
  3. PREDFORT [Concomitant]
     Indication: POSTOPERATIVE CARE
     Dosage: ONE DROP TWICE DAILY
     Dates: start: 201401

REACTIONS (2)
  - Glaucoma [Unknown]
  - Cataract [Unknown]
